FAERS Safety Report 15028116 (Version 2)
Quarter: 2018Q3

REPORT INFORMATION
  Report Type: Spontaneous
  Country: US (occurrence: US)
  Receive Date: 20180619
  Receipt Date: 20180831
  Transmission Date: 20181010
  Serious: No
  Sender: FDA-Public Use
  Company Number: US-PFIZER INC-2018247462

PATIENT
  Age: 20 Year
  Sex: Female

DRUGS (1)
  1. EUCRISA [Suspect]
     Active Substance: CRISABOROLE
     Indication: BLEPHARITIS
     Dosage: UNK, TWICE DAILY
     Route: 061
     Dates: start: 20180515, end: 20180601

REACTIONS (4)
  - Photosensitivity reaction [Recovered/Resolved]
  - Urticaria [Unknown]
  - Product use in unapproved indication [Unknown]
  - Skin burning sensation [Recovered/Resolved]

NARRATIVE: CASE EVENT DATE: 201805
